FAERS Safety Report 11136145 (Version 1)
Quarter: 2015Q2

REPORT INFORMATION
  Report Type: Spontaneous
  Country: BR (occurrence: BR)
  Receive Date: 20150526
  Receipt Date: 20150526
  Transmission Date: 20150821
  Serious: Yes (Hospitalization, Other)
  Sender: FDA-Public Use
  Company Number: BR-PFIZER INC-2015173271

PATIENT
  Age: 89 Year
  Sex: Female
  Weight: 44 kg

DRUGS (4)
  1. FRONTAL [Suspect]
     Active Substance: ALPRAZOLAM
     Indication: DYSPNOEA
  2. FRONTAL [Suspect]
     Active Substance: ALPRAZOLAM
     Indication: NERVOUSNESS
     Dosage: 2 TABLETS OF 1 MG, DAILY
     Route: 048
     Dates: start: 2005
  3. FRONTAL [Suspect]
     Active Substance: ALPRAZOLAM
     Indication: SLEEP DISORDER
  4. PANTOZOL [Concomitant]
     Active Substance: PANTOPRAZOLE SODIUM
     Indication: GASTROINTESTINAL DISORDER
     Dosage: 1 TABLET, DAILY
     Dates: start: 201502

REACTIONS (8)
  - Fall [Unknown]
  - Gait disturbance [Not Recovered/Not Resolved]
  - Fracture [Unknown]
  - Pain in extremity [Recovering/Resolving]
  - Hypertension [Unknown]
  - Respiratory disorder [Recovering/Resolving]
  - Nervousness [Unknown]
  - Abdominal pain [Recovering/Resolving]

NARRATIVE: CASE EVENT DATE: 2015
